FAERS Safety Report 7235333-7 (Version None)
Quarter: 2011Q1

REPORT INFORMATION
  Report Type: 
  Country: None (occurrence: None)
  Receive Date: 20110114
  Receipt Date: 20110114
  Transmission Date: 20110831
  Serious: Yes (Hospitalization)
  Sender: FDA-Public Use
  Company Number: None

PATIENT
  Age: 84 Year
  Sex: Female
  Weight: 72 kg

DRUGS (2)
  1. CARIMUNE [Suspect]
     Indication: GUILLAIN-BARRE SYNDROME
     Dosage: 12 ONCE DAILY IV
     Route: 042
     Dates: start: 20110109, end: 20110111
  2. CARIMUNE [Suspect]

REACTIONS (1)
  - RENAL FAILURE ACUTE [None]
